FAERS Safety Report 10471472 (Version 1)
Quarter: 2014Q3

REPORT INFORMATION
  Report Type: Spontaneous
  Country: US (occurrence: US)
  Receive Date: 20140923
  Receipt Date: 20140923
  Transmission Date: 20150326
  Serious: No
  Sender: FDA-Public Use
  Company Number: US-009507513-1409USA007468

PATIENT
  Weight: 67.57 kg

DRUGS (1)
  1. NEXPLANON [Suspect]
     Active Substance: ETONOGESTREL
     Dosage: 1 ROD/THREE YEARS
     Route: 059
     Dates: start: 20140915, end: 20140915

REACTIONS (4)
  - Device difficult to use [Not Recovered/Not Resolved]
  - Device kink [Unknown]
  - No adverse event [Unknown]
  - Product quality issue [Unknown]
